FAERS Safety Report 9250706 (Version 1)
Quarter: 2013Q1

REPORT INFORMATION
  Report Type: Spontaneous
  Country: US (occurrence: None)
  Receive Date: 20130305
  Receipt Date: 20130305
  Transmission Date: 20140127
  Serious: Yes (Other)
  Sender: FDA-Public Use
  Company Number: 163-21880-12082915

PATIENT
  Age: 65 Year
  Sex: Male

DRUGS (4)
  1. REVLIMID [Suspect]
     Indication: PLASMA CELL MYELOMA
     Dosage: 25 MG, 14 IN 14 D, PO
     Route: 048
     Dates: start: 20120625
  2. VITAMIN B12 CR (CYANOCOBALAMIN) [Concomitant]
  3. MAGNESIUM (MAGNESIUM) [Concomitant]
  4. OMEPRAZOLE (OMEPRAZOLE) [Concomitant]

REACTIONS (3)
  - Weight decreased [None]
  - Abdominal discomfort [None]
  - Asthenia [None]
